FAERS Safety Report 7898604-7 (Version None)
Quarter: 2011Q4

REPORT INFORMATION
  Report Type: 
  Country: None (occurrence: None)
  Receive Date: 20111107
  Receipt Date: 20111107
  Transmission Date: 20120403
  Serious: Yes (Other)
  Sender: FDA-Public Use
  Company Number: None

PATIENT
  Sex: Male
  Weight: 127 kg

DRUGS (1)
  1. SAPHRIS [Suspect]
     Indication: PSYCHOTIC DISORDER
     Dosage: 5MG
     Route: 060
     Dates: start: 20110912, end: 20110915

REACTIONS (11)
  - DYSARTHRIA [None]
  - BLOOD PRESSURE INCREASED [None]
  - MUSCULOSKELETAL STIFFNESS [None]
  - HYPERHIDROSIS [None]
  - UNRESPONSIVE TO STIMULI [None]
  - HYPERTENSION [None]
  - TACHYCARDIA [None]
  - EYE MOVEMENT DISORDER [None]
  - SWOLLEN TONGUE [None]
  - SWELLING FACE [None]
  - HEART RATE INCREASED [None]
